FAERS Safety Report 10102142 (Version 2)
Quarter: 2014Q2

REPORT INFORMATION
  Report Type: Spontaneous
  Country: FR (occurrence: FR)
  Receive Date: 20140424
  Receipt Date: 20140521
  Transmission Date: 20141212
  Serious: Yes (Other)
  Sender: FDA-Public Use
  Company Number: FR-ROCHE-1389100

PATIENT
  Sex: Male

DRUGS (3)
  1. HERCEPTIN [Suspect]
     Indication: GASTRIC CANCER
     Route: 065
  2. 5-FU [Suspect]
     Indication: GASTRIC CANCER
     Route: 065
  3. CISPLATIN [Suspect]
     Indication: GASTRIC CANCER
     Route: 065

REACTIONS (1)
  - Paraneoplastic syndrome [Unknown]
